FAERS Safety Report 6811862-2 (Version None)
Quarter: 2010Q3

REPORT INFORMATION
  Report Type: 
  Country: None (occurrence: None)
  Receive Date: 20100701
  Receipt Date: 20100620
  Transmission Date: 20110219
  Serious: Yes (Hospitalization, Other)
  Sender: FDA-Public Use
  Company Number: DE-JNJFOC-20100604583

PATIENT

DRUGS (1)
  1. MEBENDAZOLE [Suspect]
     Indication: ECHINOCOCCIASIS
     Dosage: IN 3 DOSES
     Route: 065

REACTIONS (1)
  - HAEMORRHAGE [None]
